FAERS Safety Report 20195968 (Version 3)
Quarter: 2022Q3

REPORT INFORMATION
  Report Type: Report from Study
  Country: DE (occurrence: DE)
  Receive Date: 20211216
  Receipt Date: 20220822
  Transmission Date: 20221027
  Serious: Yes (Hospitalization, Other)
  Sender: FDA-Public Use
  Company Number: DE-ROCHE-2546129

PATIENT
  Age: 44 Year
  Sex: Female
  Weight: 61 kg

DRUGS (34)
  1. OXYCODONE [Suspect]
     Active Substance: OXYCODONE
     Indication: Pain
     Dosage: 10 MILLIGRAM
     Route: 065
  2. OXYCODONE [Suspect]
     Active Substance: OXYCODONE
     Dosage: 10 MILLIGRAM, BID (TOGETHER WITH NALOXON)
     Route: 065
  3. OXYCODONE [Suspect]
     Active Substance: OXYCODONE
     Dosage: 20 MILLIGRAM, BID
     Route: 065
     Dates: end: 20210513
  4. OXYCODONE [Suspect]
     Active Substance: OXYCODONE
     Dosage: 5 MILLIGRAM, QD
     Route: 065
  5. PANTOPRAZOLE [Suspect]
     Active Substance: PANTOPRAZOLE
     Indication: Product used for unknown indication
     Dosage: 20 MILLIGRAM
     Route: 065
  6. NALOXONE HYDROCHLORIDE\OXYCODONE HYDROCHLORIDE [Suspect]
     Active Substance: NALOXONE HYDROCHLORIDE\OXYCODONE HYDROCHLORIDE
     Indication: Product used for unknown indication
     Dosage: 5 MILLIGRAM, 0.5 DAY (TOGETHER WITH OXYCODON)
     Route: 065
     Dates: end: 20210513
  7. COMIRNATY [Suspect]
     Active Substance: TOZINAMERAN
     Indication: COVID-19 immunisation
     Dosage: DOSE 1, SINGLE,NEXT DOSE ON: 28/MAY/2021
     Route: 065
     Dates: start: 20210428, end: 20210428
  8. NALOXONE HYDROCHLORIDE [Suspect]
     Active Substance: NALOXONE HYDROCHLORIDE
     Indication: Product used for unknown indication
     Dosage: 10 MILLIGRAM, QD (5 MILLIGRAM, BID) START 13-MAY-2021
     Route: 065
  9. NALOXONE HYDROCHLORIDE [Suspect]
     Active Substance: NALOXONE HYDROCHLORIDE
     Indication: Pain
     Dosage: 5 MILLIGRAM, BID, TOGETHER WITH OXYCODON
     Route: 065
     Dates: end: 20210513
  10. NALOXONE HYDROCHLORIDE [Suspect]
     Active Substance: NALOXONE HYDROCHLORIDE
     Dosage: 20 MILLIGRAM, BID, TOGETHER WITH OXYCODON
     Route: 065
     Dates: end: 20210513
  11. CORTISONE [Suspect]
     Active Substance: CORTISONE
     Indication: Product used for unknown indication
     Dosage: 1000 MILLIGRAM, 0.33 DAY, START 11-MAY-2020
     Route: 065
     Dates: end: 20200513
  12. CORTISONE [Suspect]
     Active Substance: CORTISONE
     Dosage: UNK
     Route: 065
  13. CORTISONE [Suspect]
     Active Substance: CORTISONE
     Dosage: 3000 MILLIGRAM, QD (1000 MG, 3X/DAY)
     Route: 065
  14. OCREVUS [Suspect]
     Active Substance: OCRELIZUMAB
     Indication: Secondary progressive multiple sclerosis
     Dosage: 300 MILLIGRAM
     Route: 042
     Dates: start: 20200206, end: 20200220
  15. OCREVUS [Suspect]
     Active Substance: OCRELIZUMAB
     Dosage: 300 MILLIGRAM, START 20-FEB-2020
     Route: 042
     Dates: start: 20200220
  16. OCREVUS [Suspect]
     Active Substance: OCRELIZUMAB
     Dosage: 600 MILLIGRAM (2X 10 MILLILITRES), START 13-AUG-2020
     Route: 042
     Dates: start: 20200813
  17. OCREVUS [Suspect]
     Active Substance: OCRELIZUMAB
     Dosage: 600 MILLIGRAM, START 15-JUL-2021
     Route: 042
     Dates: start: 20210715
  18. OCREVUS [Suspect]
     Active Substance: OCRELIZUMAB
     Dosage: 600 MILLIGRAM
     Route: 042
     Dates: start: 20200206, end: 20200220
  19. NABIXIMOLS [Suspect]
     Active Substance: NABIXIMOLS
     Indication: Product used for unknown indication
     Dosage: 2-2-2, 2 PUFFS EACH, (0.16 DAYS)
     Route: 065
     Dates: start: 202007
  20. NABIXIMOLS [Suspect]
     Active Substance: NABIXIMOLS
     Dosage: UNK (UNK (SPRAY, SUSPENSION)), START JUL-2020
     Route: 065
  21. ACETAMINOPHEN [Concomitant]
     Active Substance: ACETAMINOPHEN
     Dosage: UP TO 3 TIMES PER DAY, UNK UNK, TID
     Route: 065
  22. MIRTAZAPINE [Concomitant]
     Active Substance: MIRTAZAPINE
     Dosage: 7.5 MILLIGRAM
     Route: 065
  23. AMITRIPTYLINE [Concomitant]
     Active Substance: AMITRIPTYLINE
     Indication: Pain
     Dosage: 25 MILLIGRAM, QD
     Route: 048
     Dates: start: 2019
  24. AMITRIPTYLINE [Concomitant]
     Active Substance: AMITRIPTYLINE
     Dosage: 25 MILLIGRAM, QD (0-0-1)
     Route: 065
  25. AMITRIPTYLINE [Concomitant]
     Active Substance: AMITRIPTYLINE
     Dosage: 50 MILLIGRAM, QD, 0-0-1
     Route: 065
  26. PREGABALIN [Concomitant]
     Active Substance: PREGABALIN
     Indication: Pain
     Dosage: 100 MILLIGRAM 2-2-2 (0.16 DAY)
     Route: 065
  27. PREGABALIN [Concomitant]
     Active Substance: PREGABALIN
     Dosage: 600 MILLIGRAM
     Route: 065
  28. PREGABALIN [Concomitant]
     Active Substance: PREGABALIN
     Dosage: 200 MILLIGRAM, 0.33 DAY
     Route: 065
  29. PREGABALIN [Concomitant]
     Active Substance: PREGABALIN
     Dosage: 600 MILLIGRAM
     Route: 048
     Dates: start: 2019
  30. PREGABALIN [Concomitant]
     Active Substance: PREGABALIN
     Dosage: 100 MILLIGRAM, 2-2-2
     Route: 065
  31. DESOGESTREL [Concomitant]
     Active Substance: DESOGESTREL
     Dosage: UNK
     Route: 065
  32. MOVICOL [Concomitant]
     Active Substance: POLYETHYLENE GLYCOL 3350\POTASSIUM CHLORIDE\SODIUM BICARBONATE\SODIUM CHLORIDE
     Dosage: UNK UNK, QD (1-0-0)
     Route: 065
  33. DULOXETINE [Concomitant]
     Active Substance: DULOXETINE
     Dosage: 60 MILLIGRAM, QD (30 MILLIGRAM, BID)
     Route: 065
  34. DULOXETINE [Concomitant]
     Active Substance: DULOXETINE
     Dosage: 30 MILLIGRAM, BID,1-0-1
     Route: 065

REACTIONS (58)
  - Multiple sclerosis relapse [Recovered/Resolved]
  - Thyroid mass [Recovering/Resolving]
  - Benign neoplasm of thyroid gland [Not Recovered/Not Resolved]
  - Loss of consciousness [Not Recovered/Not Resolved]
  - Memory impairment [Unknown]
  - Musculoskeletal stiffness [Recovered/Resolved]
  - Feeling cold [Recovered/Resolved]
  - Chills [Recovered/Resolved]
  - Head discomfort [Recovered/Resolved]
  - Headache [Not Recovered/Not Resolved]
  - Dry skin [Recovering/Resolving]
  - Fungal foot infection [Recovered/Resolved]
  - Pain in extremity [Not Recovered/Not Resolved]
  - Photophobia [Recovering/Resolving]
  - Coordination abnormal [Recovered/Resolved]
  - Speech disorder [Recovering/Resolving]
  - Hyperacusis [Recovering/Resolving]
  - Muscular weakness [Recovered/Resolved]
  - Vaginal discharge [Unknown]
  - Muscle spasticity [Recovered/Resolved]
  - Joint range of motion decreased [Recovered/Resolved]
  - Menstruation irregular [Unknown]
  - Mood swings [Recovered/Resolved]
  - Back pain [Not Recovered/Not Resolved]
  - Pain [Recovering/Resolving]
  - Vomiting [Recovered/Resolved]
  - Alopecia [Recovered/Resolved]
  - Urinary incontinence [Recovered/Resolved]
  - Tongue movement disturbance [Recovering/Resolving]
  - Dyskinesia [Recovered/Resolved]
  - Constipation [Recovered/Resolved]
  - Fatigue [Recovered/Resolved]
  - Dysphagia [Recovered/Resolved]
  - Odynophagia [Recovering/Resolving]
  - Eye pain [Recovering/Resolving]
  - Irritability [Recovering/Resolving]
  - Ocular discomfort [Recovering/Resolving]
  - Anal incontinence [Recovered/Resolved]
  - Cognitive disorder [Recovered/Resolved]
  - Sensory disturbance [Recovering/Resolving]
  - Muscle spasms [Recovering/Resolving]
  - Dyspnoea [Recovered/Resolved]
  - Painful respiration [Recovered/Resolved]
  - Fall [Unknown]
  - Asthenia [Recovered/Resolved]
  - Arthralgia [Not Recovered/Not Resolved]
  - Tooth injury [Recovered/Resolved]
  - Weight increased [Recovering/Resolving]
  - Acne pustular [Recovered/Resolved]
  - Nail ridging [Not Recovered/Not Resolved]
  - Sleep apnoea syndrome [Recovering/Resolving]
  - Pruritus [Recovering/Resolving]
  - Muscle twitching [Not Recovered/Not Resolved]
  - Burning sensation [Recovered/Resolved]
  - Confusional state [Not Recovered/Not Resolved]
  - Off label use [Unknown]
  - Product use in unapproved indication [Unknown]
  - Intentional product use issue [Unknown]

NARRATIVE: CASE EVENT DATE: 20200206
